FAERS Safety Report 17413042 (Version 1)
Quarter: 2020Q1

REPORT INFORMATION
  Report Type: Spontaneous
  Country: US (occurrence: US)
  Receive Date: 20200212
  Receipt Date: 20200212
  Transmission Date: 20200409
  Serious: No
  Sender: FDA-Public Use
  Company Number: None

PATIENT
  Age: 35 Month
  Sex: Male
  Weight: 18 kg

DRUGS (7)
  1. MUPIROCIN. [Concomitant]
     Active Substance: MUPIROCIN
  2. VANACREAM [Concomitant]
  3. VITAMINS C [Concomitant]
  4. PREDNISOLONE. [Suspect]
     Active Substance: PREDNISOLONE
     Indication: WHEEZING
  5. PROBIOTICS [Concomitant]
     Active Substance: PROBIOTICS NOS
  6. COMPOUND OF BETAMETHASONE [Concomitant]
  7. ELDERBERRY [Concomitant]
     Active Substance: HERBALS

REACTIONS (2)
  - Incontinence [None]
  - Enuresis [None]

NARRATIVE: CASE EVENT DATE: 20200127
